FAERS Safety Report 4697734-0 (Version None)
Quarter: 2005Q2

REPORT INFORMATION
  Report Type: 
  Country: None (occurrence: None)
  Receive Date: 20050621
  Receipt Date: 20050621
  Transmission Date: 20051028
  Serious: Yes (Hospitalization, Disabling)
  Sender: FDA-Public Use
  Company Number: None

PATIENT
  Age: 41 Year
  Sex: Female
  Weight: 61.6892 kg

DRUGS (5)
  1. BOTOX A INJECTION [Suspect]
     Indication: CERVICAL SPASM
     Dosage: IM INJECTION X 14 DOSES  (ONE TIME ONLY)
     Route: 030
     Dates: start: 20020203
  2. BOTOX A INJECTION [Suspect]
     Indication: TORTICOLLIS
     Dosage: IM INJECTION X 14 DOSES  (ONE TIME ONLY)
     Route: 030
     Dates: start: 20020203
  3. ZANAFLEX [Concomitant]
  4. NEURONTIN [Concomitant]
  5. OPIATE ANALGESICS - UNSPECIFIED [Concomitant]

REACTIONS (16)
  - ACTIVITIES OF DAILY LIVING IMPAIRED [None]
  - ADRENOCORTICAL INSUFFICIENCY CHRONIC [None]
  - ARTHRALGIA [None]
  - AUTOIMMUNE THYROIDITIS [None]
  - DRUG INEFFECTIVE [None]
  - FATIGUE [None]
  - HEPATIC CYST [None]
  - JOINT STIFFNESS [None]
  - LUNG NEOPLASM [None]
  - MALAISE [None]
  - MUSCULOSKELETAL STIFFNESS [None]
  - NERVE CONDUCTION STUDIES ABNORMAL [None]
  - PAIN [None]
  - PHARMACEUTICAL PRODUCT COMPLAINT [None]
  - RASH MACULAR [None]
  - SERUM SICKNESS [None]
